FAERS Safety Report 24070444 (Version 1)
Quarter: 2024Q3

REPORT INFORMATION
  Report Type: Spontaneous
  Country: GB (occurrence: GB)
  Receive Date: 20240710
  Receipt Date: 20240710
  Transmission Date: 20241017
  Serious: No
  Sender: ROCHE
  Company Number: GB-ROCHE-3476209

PATIENT
  Age: 81 Year
  Sex: Male

DRUGS (10)
  1. VABYSMO [Suspect]
     Active Substance: FARICIMAB\FARICIMAB-SVOA
     Indication: Neovascular age-related macular degeneration
     Route: 065
  2. LANSOPRAZOLE [Concomitant]
     Active Substance: LANSOPRAZOLE
  3. ASPIRIN [Concomitant]
     Active Substance: ASPIRIN
  4. ATORVASTATIN [Concomitant]
     Active Substance: ATORVASTATIN
  5. BISOPROLOL [Concomitant]
     Active Substance: BISOPROLOL\BISOPROLOL FUMARATE
  6. CANDESARTAN [Concomitant]
     Active Substance: CANDESARTAN
  7. NITROGLYCERIN [Concomitant]
     Active Substance: NITROGLYCERIN
  8. ALLOPURINOL [Concomitant]
     Active Substance: ALLOPURINOL
  9. ISOSORBIDE MONONITRATE [Concomitant]
     Active Substance: ISOSORBIDE MONONITRATE
  10. GABAPENTIN [Concomitant]
     Active Substance: GABAPENTIN

REACTIONS (5)
  - Loss of consciousness [Unknown]
  - Vision blurred [Unknown]
  - Dry eye [Unknown]
  - Dizziness [Unknown]
  - Fall [Unknown]
